FAERS Safety Report 7728926 (Version 2)
Quarter: 2013Q1

REPORT INFORMATION
  Report Type: Spontaneous
  Country: US (occurrence: US)
  Receive Date: 20101222
  Receipt Date: 20130326
  Transmission Date: 20140127
  Serious: Yes (Hospitalization, Other)
  Sender: FDA-Public Use
  Company Number: US-AMGEN-KDL415924

PATIENT
  Age: 66 Year
  Sex: Female
  Weight: 70.3 kg

DRUGS (9)
  1. ENBREL [Suspect]
     Indication: PRODUCT USED FOR UNKNOWN INDICATION
     Dosage: 50 MG, QWK
     Route: 058
     Dates: start: 201005, end: 20101116
  2. FLEXERIL                           /00428402/ [Concomitant]
     Dosage: 10 MG, UNK
  3. PREDNISONE [Concomitant]
     Dosage: 5 MG, UNK
  4. COUMADIN                           /00014802/ [Concomitant]
     Dosage: 5 MG, UNK
  5. TRAZODONE [Concomitant]
     Dosage: 100 MG, UNK
  6. OMEPRAZOLE [Concomitant]
     Dosage: 40 MG, UNK
  7. CELEXA [Concomitant]
     Dosage: 40 MG, UNK
  8. AVINZA [Concomitant]
     Dosage: 60 MG, UNK
  9. NUVIGIL [Concomitant]
     Dosage: 250 MG, UNK

REACTIONS (2)
  - Pulmonary embolism [Unknown]
  - Pulmonary hypertension [Unknown]
